FAERS Safety Report 8845055 (Version 1)
Quarter: 2012Q4

REPORT INFORMATION
  Report Type: 
  Country: JP (occurrence: JP)
  Receive Date: 20121017
  Receipt Date: 20121017
  Transmission Date: 20130627
  Serious: Yes (Hospitalization)
  Sender: FDA-Public Use
  Company Number: JP-ELI_LILLY_AND_COMPANY-JP201210003645

PATIENT
  Age: 38 Year
  Sex: Male
  Weight: 61 kg

DRUGS (7)
  1. ADCIRCA [Suspect]
     Indication: PULMONARY ARTERIAL HYPERTENSION
     Dosage: 40 mg, qd
     Route: 048
     Dates: start: 20110317
  2. TREPROSTINIL [Concomitant]
     Indication: PULMONARY ARTERIAL HYPERTENSION
     Dosage: UNK
     Route: 042
     Dates: start: 20120628
  3. REVATIO [Concomitant]
     Indication: PULMONARY ARTERIAL HYPERTENSION
     Dosage: 20 mg, tid
     Route: 048
     Dates: start: 200806
  4. TRACLEER [Concomitant]
     Indication: PULMONARY ARTERIAL HYPERTENSION
     Dosage: 125 mg, bid
     Route: 048
     Dates: start: 200808
  5. LASIX [Concomitant]
     Indication: PULMONARY ARTERIAL HYPERTENSION
     Dosage: 40 mg, qd
     Route: 048
     Dates: start: 20120626
  6. ALDACTONE A [Concomitant]
     Indication: PULMONARY ARTERIAL HYPERTENSION
     Dosage: 50 mg, qd
     Route: 048
     Dates: start: 20120626
  7. ALOSITOL [Concomitant]
     Indication: GOUT
     Dosage: 100 mg, qd
     Route: 048
     Dates: start: 20120806

REACTIONS (1)
  - Device related infection [Not Recovered/Not Resolved]
